FAERS Safety Report 7737052-7 (Version None)
Quarter: 2011Q3

REPORT INFORMATION
  Report Type: 
  Country: None (occurrence: None)
  Receive Date: 20110908
  Receipt Date: 20110830
  Transmission Date: 20111222
  Serious: Yes (Hospitalization)
  Sender: FDA-Public Use
  Company Number: FR-ROCHE-787194

PATIENT
  Sex: Male

DRUGS (1)
  1. LARIAM [Suspect]
     Route: 048
     Dates: start: 20100101

REACTIONS (2)
  - DISEASE PROGRESSION [None]
  - MUSCULAR WEAKNESS [None]
